FAERS Safety Report 5734904-4 (Version None)
Quarter: 2008Q2

REPORT INFORMATION
  Report Type: 
  Country: None (occurrence: None)
  Receive Date: 20080512
  Receipt Date: 20080509
  Transmission Date: 20081010
  Serious: Yes (Hospitalization)
  Sender: FDA-Public Use
  Company Number: B0519762A

PATIENT
  Age: 78 Year
  Sex: Female
  Weight: 78 kg

DRUGS (6)
  1. AUGMENTIN '125' [Suspect]
     Indication: LOWER RESPIRATORY TRACT INFECTION
     Dosage: 625MG THREE TIMES PER DAY
     Route: 048
     Dates: start: 20080331, end: 20080414
  2. TORSEMIDE [Concomitant]
     Indication: CARDIAC FAILURE
     Dosage: 20MG PER DAY
     Route: 048
     Dates: start: 20080401, end: 20080407
  3. TORSEMIDE [Concomitant]
     Dosage: 10MG PER DAY
     Route: 048
     Dates: start: 20080414, end: 20080421
  4. TRIMIPRAMINE MALEATE [Concomitant]
     Dosage: 25MG PER DAY
     Route: 048
  5. BELOC-ZOK [Concomitant]
     Indication: CARDIAC FAILURE
     Dosage: 200MG PER DAY
     Route: 048
  6. LOSARTAN POTASSIUM [Concomitant]
     Indication: CARDIAC FAILURE
     Dosage: 100MG PER DAY
     Route: 048

REACTIONS (5)
  - ALANINE AMINOTRANSFERASE INCREASED [None]
  - ASPARTATE AMINOTRANSFERASE INCREASED [None]
  - BLOOD ALKALINE PHOSPHATASE INCREASED [None]
  - GAMMA-GLUTAMYLTRANSFERASE INCREASED [None]
  - HEPATOMEGALY [None]
